FAERS Safety Report 25644692 (Version 1)
Quarter: 2025Q3

REPORT INFORMATION
  Report Type: Spontaneous
  Country: EU (occurrence: EU)
  Receive Date: 20250805
  Receipt Date: 20250805
  Transmission Date: 20251021
  Serious: Yes (Other)
  Sender: SANDOZ
  Company Number: None

PATIENT
  Age: 55 Year
  Sex: Female

DRUGS (9)
  1. FULVESTRANT [Concomitant]
     Active Substance: FULVESTRANT
     Indication: Product used for unknown indication
     Route: 065
  2. LETROZOLE [Interacting]
     Active Substance: LETROZOLE
     Indication: Breast cancer metastatic
     Route: 065
  3. LETROZOLE [Interacting]
     Active Substance: LETROZOLE
     Indication: Metastases to pelvis
     Route: 065
     Dates: end: 202011
  4. RIBOCICLIB [Interacting]
     Active Substance: RIBOCICLIB
     Indication: Metastases to pelvis
     Dosage: UNKNOWN
     Route: 065
     Dates: end: 202011
  5. RIBOCICLIB [Interacting]
     Active Substance: RIBOCICLIB
     Dosage: UNKNOWN
     Route: 065
     Dates: end: 202011
  6. RIBOCICLIB [Interacting]
     Active Substance: RIBOCICLIB
     Indication: Breast cancer metastatic
     Route: 065
     Dates: start: 202011
  7. RIBOCICLIB [Interacting]
     Active Substance: RIBOCICLIB
     Route: 065
     Dates: start: 202011
  8. ZOLEDRONIC ACID [Interacting]
     Active Substance: ZOLEDRONIC ACID
     Indication: Metastases to pelvis
     Route: 065
     Dates: end: 202011
  9. ZOLEDRONIC ACID [Interacting]
     Active Substance: ZOLEDRONIC ACID
     Indication: Breast cancer metastatic

REACTIONS (2)
  - Drug-induced liver injury [Unknown]
  - Vitiligo [Unknown]

NARRATIVE: CASE EVENT DATE: 20201101
